FAERS Safety Report 6700824-1 (Version None)
Quarter: 2010Q2

REPORT INFORMATION
  Report Type: 
  Country: None (occurrence: None)
  Receive Date: 20100428
  Receipt Date: 20100421
  Transmission Date: 20101027
  Serious: No
  Sender: FDA-Public Use
  Company Number: US-B.I. PHARMACEUTICALS,INC./RIDGEFIELD-2010-BP-04640BP

PATIENT
  Sex: Male

DRUGS (1)
  1. MIRAPEX [Suspect]
     Indication: PARKINSON'S DISEASE

REACTIONS (5)
  - AGGRESSION [None]
  - ALCOHOL USE [None]
  - GAMBLING [None]
  - IMPAIRED DRIVING ABILITY [None]
  - LIBIDO INCREASED [None]
